FAERS Safety Report 15798484 (Version 1)
Quarter: 2019Q1

REPORT INFORMATION
  Report Type: Report from Study
  Country: US (occurrence: US)
  Receive Date: 20190108
  Receipt Date: 20190108
  Transmission Date: 20190417
  Serious: Yes (Hospitalization)
  Sender: FDA-Public Use
  Company Number: US-BAYER-2018-241809

PATIENT
  Age: 57 Year
  Sex: Male

DRUGS (2)
  1. STIVARGA [Suspect]
     Active Substance: REGORAFENIB
     Indication: COLORECTAL CANCER
     Dosage: DAILY DOSE 80 MG (21 DAYS ON, 7 DAYS OFF)
     Route: 048
     Dates: start: 20181230
  2. STIVARGA [Suspect]
     Active Substance: REGORAFENIB
     Indication: COLORECTAL CANCER
     Dosage: DAILY DOSE 80 MG (21 DAYS ON, 7 DAYS OFF)
     Route: 048
     Dates: start: 20181217, end: 20181224

REACTIONS (6)
  - Nausea [Not Recovered/Not Resolved]
  - Vomiting [Not Recovered/Not Resolved]
  - Early satiety [Not Recovered/Not Resolved]
  - Off label use [None]
  - Dyspnoea [Not Recovered/Not Resolved]
  - Dehydration [None]

NARRATIVE: CASE EVENT DATE: 201812
